FAERS Safety Report 6505617-6 (Version None)
Quarter: 2009Q4

REPORT INFORMATION
  Report Type: 
  Country: None (occurrence: None)
  Receive Date: 20091217
  Receipt Date: 20091217
  Transmission Date: 20100525
  Serious: Yes (Life-Threatening, Hospitalization, Disabling)
  Sender: FDA-Public Use
  Company Number: None

PATIENT
  Age: 52 Year
  Sex: Male
  Weight: 90 kg

DRUGS (1)
  1. NPLATE [Suspect]
     Indication: THROMBOCYTOPENIA
     Dosage: 90 MCG X1 SQ
     Route: 058
     Dates: start: 20091103, end: 20091201

REACTIONS (2)
  - ABDOMINAL PAIN [None]
  - BLOOD BILIRUBIN INCREASED [None]
